FAERS Safety Report 6275538-5 (Version None)
Quarter: 2009Q3

REPORT INFORMATION
  Report Type: 
  Country: None (occurrence: None)
  Receive Date: 20090721
  Receipt Date: 20080130
  Transmission Date: 20100115
  Serious: Yes (Other)
  Sender: FDA-Public Use
  Company Number: US-PFIZER INC-2008010346

PATIENT
  Sex: Female
  Weight: 56.818 kg

DRUGS (2)
  1. DILANTIN [Suspect]
     Indication: CONVULSION PROPHYLAXIS
     Dosage: EVERY NIGHT
     Dates: start: 19890101
  2. PHENYTOIN [Suspect]
     Indication: CONVULSION PROPHYLAXIS

REACTIONS (2)
  - ABDOMINAL PAIN [None]
  - BACK PAIN [None]
